FAERS Safety Report 5854445-3 (Version None)
Quarter: 2008Q3

REPORT INFORMATION
  Report Type: 
  Country: None (occurrence: None)
  Receive Date: 20080822
  Receipt Date: 20080815
  Transmission Date: 20090109
  Serious: Yes (Other)
  Sender: FDA-Public Use
  Company Number: US-PFIZER INC-2008054909

PATIENT
  Sex: Male

DRUGS (2)
  1. LIPITOR [Suspect]
     Route: 048
  2. CRESTOR [Suspect]

REACTIONS (3)
  - ARTHRALGIA [None]
  - MUSCLE ATROPHY [None]
  - MYALGIA [None]
